FAERS Safety Report 4330028-1 (Version None)
Quarter: 2004Q1

REPORT INFORMATION
  Report Type: 
  Country: None (occurrence: None)
  Receive Date: 20040329
  Receipt Date: 20040317
  Transmission Date: 20041129
  Serious: Yes (Death, Hospitalization)
  Sender: FDA-Public Use
  Company Number: 2004AP01736

PATIENT
  Age: 70 Year
  Sex: Female
  Weight: 45.5 kg

DRUGS (9)
  1. ATENOLOL [Suspect]
  2. LEVOFLOXACIN [Suspect]
  3. CEFTRIAXONE [Suspect]
  4. NICORANDIL [Concomitant]
  5. AMLODIPINE BESYLATE [Concomitant]
  6. ETIZOLAM [Concomitant]
  7. FAMOTIDINE [Concomitant]
  8. ATORVASTATIN [Concomitant]
  9. SENNOSIDE [Concomitant]

REACTIONS (4)
  - BRONCHITIS ACUTE [None]
  - INTERSTITIAL LUNG DISEASE [None]
  - LYMPHOCYTE STIMULATION TEST POSITIVE [None]
  - PLATELET COUNT ABNORMAL [None]
